FAERS Safety Report 13528462 (Version 1)
Quarter: 2017Q2

REPORT INFORMATION
  Report Type: Spontaneous
  Country: US (occurrence: US)
  Receive Date: 20170509
  Receipt Date: 20170509
  Transmission Date: 20170830
  Serious: No
  Sender: FDA-Public Use
  Company Number: US-ELI_LILLY_AND_COMPANY-US201705001089

PATIENT
  Age: 70 Year
  Sex: Male

DRUGS (2)
  1. DOCETAXEL. [Concomitant]
     Active Substance: DOCETAXEL
     Indication: ADENOSQUAMOUS CELL LUNG CANCER
     Dosage: 75 MG/M2, CYCLICAL
     Route: 042
     Dates: start: 201703
  2. CYRAMZA [Suspect]
     Active Substance: RAMUCIRUMAB
     Indication: ADENOSQUAMOUS CELL LUNG CANCER
     Dosage: 10 MG/KG, CYCLICAL
     Route: 042

REACTIONS (6)
  - Photophobia [Unknown]
  - Eye pain [Unknown]
  - Dry eye [Unknown]
  - Eye irritation [Unknown]
  - Headache [Unknown]
  - Lacrimation increased [Unknown]
